FAERS Safety Report 19436874 (Version 1)
Quarter: 2021Q2

REPORT INFORMATION
  Report Type: Spontaneous
  Country: US (occurrence: US)
  Receive Date: 20210619
  Receipt Date: 20210619
  Transmission Date: 20210717
  Serious: No
  Sender: FDA-Public Use
  Company Number: US-ASTRAZENECA-2021A492995

PATIENT
  Age: 25345 Day
  Sex: Female

DRUGS (2)
  1. BYDUREON BCISE [Suspect]
     Active Substance: EXENATIDE
     Route: 058
  2. BYDUREON [Concomitant]
     Active Substance: EXENATIDE
     Route: 058

REACTIONS (3)
  - Injection site mass [Recovered/Resolved]
  - Injection site indentation [Recovering/Resolving]
  - Device delivery system issue [Unknown]

NARRATIVE: CASE EVENT DATE: 20210528
